FAERS Safety Report 17510028 (Version 10)
Quarter: 2023Q2

REPORT INFORMATION
  Report Type: Spontaneous
  Country: US (occurrence: US)
  Receive Date: 20200306
  Receipt Date: 20230615
  Transmission Date: 20230722
  Serious: Yes (Other)
  Sender: FDA-Public Use
  Company Number: US-PFIZER INC-2020100071

PATIENT
  Age: 59 Year
  Sex: Male

DRUGS (3)
  1. XELJANZ XR [Suspect]
     Active Substance: TOFACITINIB CITRATE
     Indication: Rheumatoid arthritis
     Dosage: 11 MG
     Route: 048
     Dates: start: 201701, end: 2023
  2. COVID-19 VACCINE [Concomitant]
     Indication: COVID-19 immunisation
     Dosage: UNK
  3. METHOTREXATE [Concomitant]
     Active Substance: METHOTREXATE

REACTIONS (26)
  - Neuropathy peripheral [Not Recovered/Not Resolved]
  - Pneumonia [Unknown]
  - Pain [Unknown]
  - Swelling [Unknown]
  - Confusional state [Recovering/Resolving]
  - Chest pain [Recovering/Resolving]
  - Agoraphobia [Unknown]
  - Poor peripheral circulation [Unknown]
  - Pain in extremity [Unknown]
  - Exostosis [Unknown]
  - Sinus disorder [Not Recovered/Not Resolved]
  - Musculoskeletal stiffness [Unknown]
  - Gait disturbance [Unknown]
  - Cough [Not Recovered/Not Resolved]
  - Rhinorrhoea [Not Recovered/Not Resolved]
  - Infection [Unknown]
  - Feeling of body temperature change [Unknown]
  - Vomiting [Unknown]
  - Oxygen saturation decreased [Unknown]
  - Visual impairment [Unknown]
  - Headache [Unknown]
  - Inner ear disorder [Unknown]
  - Malaise [Unknown]
  - Product dose omission in error [Unknown]
  - Discouragement [Unknown]
  - Depression [Unknown]

NARRATIVE: CASE EVENT DATE: 20220101
